FAERS Safety Report 9388569 (Version 1)
Quarter: 2013Q3

REPORT INFORMATION
  Report Type: Spontaneous
  Country: US (occurrence: US)
  Receive Date: 20130708
  Receipt Date: 20130708
  Transmission Date: 20140515
  Serious: Yes (Hospitalization, Other)
  Sender: FDA-Public Use
  Company Number: US-JNJFOC-20130616446

PATIENT
  Age: 28 Year
  Sex: Female

DRUGS (1)
  1. ORTHO TRI-CYCLEN [Suspect]
     Indication: OLIGOMENORRHOEA
     Route: 065

REACTIONS (6)
  - Coma [Recovered/Resolved]
  - Brain injury [Unknown]
  - Pulmonary thrombosis [Unknown]
  - Amnesia [Unknown]
  - Loss of consciousness [Recovered/Resolved]
  - Off label use [Unknown]
